FAERS Safety Report 8920573 (Version 2)
Quarter: 2013Q1

REPORT INFORMATION
  Report Type: Spontaneous
  Country: IT (occurrence: IT)
  Receive Date: 20121122
  Receipt Date: 20130121
  Transmission Date: 20140127
  Serious: Yes (Hospitalization)
  Sender: FDA-Public Use
  Company Number: IT-ELI_LILLY_AND_COMPANY-IT201211003922

PATIENT
  Age: 66 Year
  Sex: Female

DRUGS (6)
  1. ALIMTA [Suspect]
     Indication: LUNG NEOPLASM MALIGNANT
     Dosage: 600 MG, PER CYCLE
     Route: 042
     Dates: start: 20120807, end: 20120807
  2. CARBOPLATINO TEVA [Concomitant]
     Indication: LUNG NEOPLASM MALIGNANT
     Dosage: 400 MG, PER CYCLE
     Route: 042
     Dates: start: 20120807, end: 20120807
  3. DECADRON                                /CAN/ [Concomitant]
     Route: 042
  4. KYTRIL [Concomitant]
     Route: 042
  5. DOBETIN [Concomitant]
     Route: 042
  6. FOLIC ACID [Concomitant]
     Route: 048

REACTIONS (5)
  - Abdominal pain upper [Recovering/Resolving]
  - Presyncope [Recovering/Resolving]
  - Hypotension [Recovering/Resolving]
  - Venous thrombosis [Recovering/Resolving]
  - Off label use [Unknown]
